FAERS Safety Report 20660058 (Version 1)
Quarter: 2022Q1

REPORT INFORMATION
  Report Type: Spontaneous
  Country: DE (occurrence: None)
  Receive Date: 20220331
  Receipt Date: 20220331
  Transmission Date: 20220423
  Serious: Yes (Other)
  Sender: FDA-Public Use
  Company Number: DE-ROCHE-3064556

PATIENT
  Age: 33 Year
  Sex: Female

DRUGS (12)
  1. CLONAZEPAM [Suspect]
     Active Substance: CLONAZEPAM
     Indication: Product used for unknown indication
     Route: 048
     Dates: start: 20210922, end: 20210922
  2. ASPIRIN [Suspect]
     Active Substance: ASPIRIN
     Indication: Product used for unknown indication
     Route: 048
     Dates: start: 20210922, end: 20210922
  3. DIAZEPAM [Suspect]
     Active Substance: DIAZEPAM
     Indication: Product used for unknown indication
     Route: 048
     Dates: start: 20210922, end: 20210922
  4. BRINTELLIX [Suspect]
     Active Substance: VORTIOXETINE HYDROBROMIDE
     Indication: Product used for unknown indication
     Route: 048
     Dates: start: 20210922, end: 20210922
  5. IBUPROFEN [Suspect]
     Active Substance: IBUPROFEN
     Indication: Product used for unknown indication
     Route: 048
     Dates: start: 20210922, end: 20210922
  6. CAFFEINE\DIPHENHYDRAMINE\HEXETYLAMINE\PROPYPHENAZONE\SALICYLAMIDE [Suspect]
     Active Substance: CAFFEINE\DIPHENHYDRAMINE\HEXETYLAMINE\PROPYPHENAZONE\SALICYLAMIDE
     Indication: Product used for unknown indication
     Route: 048
     Dates: start: 20210922, end: 20210922
  7. KETOPROFEN [Suspect]
     Active Substance: KETOPROFEN
     Indication: Product used for unknown indication
     Route: 048
     Dates: start: 20210922, end: 20210922
  8. CLOZAPINE [Suspect]
     Active Substance: CLOZAPINE
     Indication: Product used for unknown indication
     Route: 048
     Dates: start: 20210922, end: 20210922
  9. METHAMPHETAMINE [Suspect]
     Active Substance: METHAMPHETAMINE
     Indication: Product used for unknown indication
     Route: 048
     Dates: start: 20210922, end: 20210922
  10. NAPROXEN SODIUM [Suspect]
     Active Substance: NAPROXEN SODIUM
     Indication: Product used for unknown indication
     Route: 048
     Dates: start: 20210922, end: 20210922
  11. SULPIRIDE [Suspect]
     Active Substance: SULPIRIDE
     Indication: Product used for unknown indication
     Route: 065
     Dates: start: 20210922, end: 20210922
  12. ACETAMINOPHEN [Suspect]
     Active Substance: ACETAMINOPHEN
     Indication: Product used for unknown indication
     Route: 048
     Dates: start: 20210922, end: 20210922

REACTIONS (3)
  - Loss of consciousness [Unknown]
  - Coma [Unknown]
  - Overdose [Unknown]

NARRATIVE: CASE EVENT DATE: 20210922
